FAERS Safety Report 7040550-5 (Version None)
Quarter: 2010Q4

REPORT INFORMATION
  Report Type: 
  Country: None (occurrence: None)
  Receive Date: 20101006
  Receipt Date: 20100920
  Transmission Date: 20110411
  Serious: Yes (Other)
  Sender: FDA-Public Use
  Company Number: ACO_02291_2010

PATIENT
  Sex: Female
  Weight: 61.6892 kg

DRUGS (3)
  1. AMPYRA [Suspect]
     Indication: BALANCE DISORDER
     Dosage: (10 MG QD ORAL)
     Route: 048
     Dates: start: 20100830, end: 20100906
  2. AMPYRA [Suspect]
     Indication: GAIT DISTURBANCE
     Dosage: (10 MG QD ORAL)
     Route: 048
     Dates: start: 20100830, end: 20100906
  3. REBIF [Concomitant]

REACTIONS (1)
  - ORTHOSTATIC HYPOTENSION [None]
